FAERS Safety Report 18990355 (Version 3)
Quarter: 2021Q2

REPORT INFORMATION
  Report Type: Report from Study
  Country: FR (occurrence: FR)
  Receive Date: 20210310
  Receipt Date: 20210419
  Transmission Date: 20210717
  Serious: Yes (Hospitalization)
  Sender: FDA-Public Use
  Company Number: FR-ROCHE-2781518

PATIENT
  Age: 88 Year
  Sex: Female
  Weight: 95 kg

DRUGS (11)
  1. PARACETAMOL [Concomitant]
     Active Substance: ACETAMINOPHEN
  2. TRAMADOL. [Concomitant]
     Active Substance: TRAMADOL
  3. VALACYCLOVIR [Concomitant]
     Active Substance: VALACYCLOVIR HYDROCHLORIDE
  4. OBINUTUZUMAB. [Suspect]
     Active Substance: OBINUTUZUMAB
     Indication: B-CELL LYMPHOMA REFRACTORY
     Dosage: ON 01/FEB/2021, SHE RECEIVED HER MOST RECENT DOSE OF OBINUTUZUMAB.
     Route: 042
     Dates: start: 20200914
  5. METHYLPREDNISOLONE. [Concomitant]
     Active Substance: METHYLPREDNISOLONE
  6. ESOMEPRAZOLE. [Concomitant]
     Active Substance: ESOMEPRAZOLE MAGNESIUM
  7. VITAMIN A [Concomitant]
     Active Substance: VITAMIN A
  8. KARDEGIC [Concomitant]
     Active Substance: ASPIRIN DL-LYSINE
  9. BACTRIM [Concomitant]
     Active Substance: SULFAMETHOXAZOLE\TRIMETHOPRIM
  10. LAROXYL [Concomitant]
     Active Substance: AMITRIPTYLINE HYDROCHLORIDE
  11. FOLINORAL [Concomitant]
     Active Substance: LEUCOVORIN CALCIUM

REACTIONS (1)
  - Atrial fibrillation [Recovered/Resolved]

NARRATIVE: CASE EVENT DATE: 20210224
